FAERS Safety Report 18683514 (Version 1)
Quarter: 2020Q4

REPORT INFORMATION
  Report Type: Spontaneous
  Country: JP (occurrence: JP)
  Receive Date: 20201230
  Receipt Date: 20201230
  Transmission Date: 20210114
  Serious: Yes (Other)
  Sender: FDA-Public Use
  Company Number: JP-PFIZER INC-2020509380

PATIENT
  Age: 40 Year
  Sex: Male

DRUGS (1)
  1. METHYLPREDNISOLONE. [Suspect]
     Active Substance: METHYLPREDNISOLONE
     Indication: SYSTEMIC LUPUS ERYTHEMATOSUS
     Dosage: 18 MG, DAILY

REACTIONS (7)
  - Altered state of consciousness [Unknown]
  - Nuchal rigidity [Unknown]
  - Rhinitis [Unknown]
  - Lymphopenia [Unknown]
  - Meningitis [Unknown]
  - CSF granulocyte count abnormal [Unknown]
  - Thrombocytopenia [Unknown]
